FAERS Safety Report 25690009 (Version 1)
Quarter: 2025Q3

REPORT INFORMATION
  Report Type: Report from Study
  Country: CA (occurrence: CA)
  Receive Date: 20250818
  Receipt Date: 20250818
  Transmission Date: 20251021
  Serious: Yes (Death, Other)
  Sender: TAKEDA
  Company Number: CA-TAKEDA-2025TUS072867

PATIENT
  Age: 76 Year
  Sex: Male

DRUGS (17)
  1. VEDOLIZUMAB [Suspect]
     Active Substance: VEDOLIZUMAB
     Indication: Crohn^s disease
  2. PANTOPRAZOLE SODIUM [Suspect]
     Active Substance: PANTOPRAZOLE SODIUM
     Indication: Product used for unknown indication
     Dosage: 40 MILLIGRAM, QD
  3. METHOTREXATE [Concomitant]
     Active Substance: METHOTREXATE
     Dosage: 2.5 MILLIGRAM, 1/WEEK
  4. VENTOLIN [Concomitant]
     Active Substance: ALBUTEROL SULFATE
  5. WARFARIN [Concomitant]
     Active Substance: WARFARIN
  6. OXYCODONE [Concomitant]
     Active Substance: OXYCODONE
  7. METFORMIN [Concomitant]
     Active Substance: METFORMIN HYDROCHLORIDE
  8. LASIX [Concomitant]
     Active Substance: FUROSEMIDE
  9. BISOPROLOL [Concomitant]
     Active Substance: BISOPROLOL
  10. AMLODIPINE [Concomitant]
     Active Substance: AMLODIPINE BESYLATE
  11. ROSUVASTATIN [Concomitant]
     Active Substance: ROSUVASTATIN
  12. ACETAMINOPHEN [Concomitant]
     Active Substance: ACETAMINOPHEN
  13. GABAPENTIN [Concomitant]
     Active Substance: GABAPENTIN
  14. FOLIC ACID [Concomitant]
     Active Substance: FOLIC ACID
  15. DULOXETINE [Concomitant]
     Active Substance: DULOXETINE
  16. RAMIPRIL [Concomitant]
     Active Substance: RAMIPRIL
  17. METAMUCIL [Concomitant]
     Active Substance: PLANTAGO SEED

REACTIONS (1)
  - Death [Fatal]

NARRATIVE: CASE EVENT DATE: 20250726
